FAERS Safety Report 10560923 (Version 6)
Quarter: 2015Q3

REPORT INFORMATION
  Report Type: Report from Study
  Country: US (occurrence: US)
  Receive Date: 20141103
  Receipt Date: 20150707
  Transmission Date: 20151125
  Serious: Yes (Hospitalization, Other)
  Sender: FDA-Public Use
  Company Number: US-SA-2014SA112211

PATIENT
  Age: 81 Year
  Sex: Female

DRUGS (1)
  1. AUBAGIO [Suspect]
     Active Substance: TERIFLUNOMIDE
     Indication: MULTIPLE SCLEROSIS
     Route: 048
     Dates: start: 20140809

REACTIONS (10)
  - Confusional state [Unknown]
  - Abdominal discomfort [Unknown]
  - Unevaluable event [Unknown]
  - Fall [Unknown]
  - Dizziness [Recovering/Resolving]
  - Cognitive disorder [Unknown]
  - Walking aid user [Unknown]
  - Surgery [Unknown]
  - Nausea [Recovering/Resolving]
  - Paraesthesia [Unknown]

NARRATIVE: CASE EVENT DATE: 201408
